FAERS Safety Report 8356470-X (Version None)
Quarter: 2012Q2

REPORT INFORMATION
  Report Type: 
  Country: None (occurrence: None)
  Receive Date: 20120511
  Receipt Date: 20120511
  Transmission Date: 20120825
  Serious: No
  Sender: FDA-Public Use
  Company Number: None

PATIENT
  Age: 12 Year
  Sex: Female
  Weight: 32.659 kg

DRUGS (1)
  1. VIVELLE [Suspect]
     Indication: TURNER'S SYNDROME
     Dosage: 0.025 MG PATCH 2 X WEEK TRANSDERMAL
     Route: 062
     Dates: start: 20120101, end: 20120509

REACTIONS (1)
  - ALOPECIA [None]
